FAERS Safety Report 21740272 (Version 1)
Quarter: 2022Q4

REPORT INFORMATION
  Report Type: Report from Study
  Country: US (occurrence: US)
  Receive Date: 20221216
  Receipt Date: 20221216
  Transmission Date: 20230113
  Serious: Yes (Life-Threatening, Hospitalization)
  Sender: FDA-Public Use
  Company Number: US-ARGENX-2022-ARGX-US002700

PATIENT

DRUGS (1)
  1. VYVGART [Suspect]
     Active Substance: EFGARTIGIMOD ALFA-FCAB
     Indication: Myasthenia gravis

REACTIONS (6)
  - Anaphylactic reaction [Unknown]
  - Mechanical ventilation [Unknown]
  - Malaise [Unknown]
  - Dysphagia [Unknown]
  - Speech disorder [Unknown]
  - Thyroid cancer [Unknown]
